FAERS Safety Report 8985460 (Version 1)
Quarter: 2012Q4

REPORT INFORMATION
  Report Type: 
  Country: FR (occurrence: FR)
  Receive Date: 20121226
  Receipt Date: 20121226
  Transmission Date: 20130627
  Serious: Yes (Other)
  Sender: FDA-Public Use
  Company Number: FR-ASTRAZENECA-2012SE94193

PATIENT
  Age: 11998 Day
  Sex: Female

DRUGS (4)
  1. XYLOCAINE 2 PERCENT WITHOUT ADRENALINE [Suspect]
     Indication: INDUCTION OF ANAESTHESIA
     Route: 042
     Dates: start: 20121108, end: 20121108
  2. SYNTOCINON [Suspect]
     Route: 042
     Dates: start: 20121108, end: 20121108
  3. SUFENTANIL [Suspect]
     Indication: INDUCTION OF ANAESTHESIA
     Route: 042
     Dates: start: 20121108, end: 20121108
  4. AUGMENTIN [Suspect]
     Route: 042
     Dates: start: 20121108, end: 20121108

REACTIONS (6)
  - Hypotension [Recovered/Resolved]
  - Tachycardia [Recovered/Resolved]
  - Dyspnoea [Recovered/Resolved]
  - Erythema [Recovered/Resolved]
  - Vomiting [Unknown]
  - Anaphylactic reaction [Unknown]
